FAERS Safety Report 7933878-5 (Version None)
Quarter: 2011Q4

REPORT INFORMATION
  Report Type: 
  Country: None (occurrence: None)
  Receive Date: 20111122
  Receipt Date: 20111110
  Transmission Date: 20120403
  Serious: Yes (Hospitalization, Other)
  Sender: FDA-Public Use
  Company Number: US-BAYER-2011-042801

PATIENT
  Age: 30 Year
  Sex: Female
  Weight: 55.782 kg

DRUGS (7)
  1. PRISTIQ [Concomitant]
     Indication: DEPRESSION
     Dosage: 50 MG, UNK
     Dates: start: 20080101
  2. YAZ [Suspect]
     Indication: CONTRACEPTION
     Dosage: UNK
     Dates: start: 20080701, end: 20090801
  3. VICODIN [Concomitant]
     Indication: PAIN
     Dosage: 500 MG, UNK
     Route: 048
  4. YAZ [Suspect]
  5. YAZ [Suspect]
     Indication: PREMENSTRUAL SYNDROME
  6. AMBIEN [Concomitant]
     Indication: INSOMNIA
     Dosage: 10 MG, UNK
     Route: 048
     Dates: start: 20070101, end: 20090101
  7. ESTRADIOL [Concomitant]
     Indication: HYSTERECTOMY
     Dosage: UNK
     Route: 048
     Dates: start: 20080401

REACTIONS (16)
  - SUPERIOR SAGITTAL SINUS THROMBOSIS [None]
  - ANHEDONIA [None]
  - WEIGHT DECREASED [None]
  - CHOLELITHIASIS [None]
  - TRANSVERSE SINUS THROMBOSIS [None]
  - FEAR [None]
  - CHOLECYSTITIS CHRONIC [None]
  - PAIN [None]
  - GASTROINTESTINAL DISORDER [None]
  - POST CHOLECYSTECTOMY SYNDROME [None]
  - ABDOMINAL PAIN UPPER [None]
  - ANXIETY [None]
  - VEIN DISORDER [None]
  - PSYCHOLOGICAL TRAUMA [None]
  - GALLBLADDER DISORDER [None]
  - INJURY [None]
